FAERS Safety Report 25037881 (Version 1)
Quarter: 2025Q1

REPORT INFORMATION
  Report Type: Spontaneous
  Country: FR (occurrence: FR)
  Receive Date: 20250304
  Receipt Date: 20250304
  Transmission Date: 20250408
  Serious: Yes (Other)
  Sender: CHEMISCHE FABRIK KREUSSLER
  Company Number: FR-AFSSAPS-TO2025000257

PATIENT
  Age: 41 Year
  Sex: Female
  Weight: 73 kg

DRUGS (1)
  1. AETOXISCLEROL [Suspect]
     Active Substance: POLIDOCANOL
     Indication: Varicose vein
     Route: 042
     Dates: start: 20250206, end: 20250206

REACTIONS (2)
  - Venous thrombosis [Recovering/Resolving]
  - Pulmonary embolism [Recovering/Resolving]

NARRATIVE: CASE EVENT DATE: 20250212
